FAERS Safety Report 16918433 (Version 4)
Quarter: 2019Q4

REPORT INFORMATION
  Report Type: Spontaneous
  Country: US (occurrence: US)
  Receive Date: 20191015
  Receipt Date: 20191115
  Transmission Date: 20200122
  Serious: Yes (Other)
  Sender: FDA-Public Use
  Company Number: US-SHIRE-US201932358

PATIENT
  Sex: Male

DRUGS (4)
  1. NATPARA (PARATHYROID HORMONE) [Suspect]
     Active Substance: PARATHYROID HORMONE
     Indication: HYPOPARATHYROIDISM
     Dosage: 50 MICROGRAM, 1X/DAY:QD
     Route: 058
     Dates: start: 20151104
  2. CALCIUM [Concomitant]
     Active Substance: CALCIUM
     Indication: CONGENITAL HYPOPARATHYROIDISM
  3. NATPARA (PARATHYROID HORMONE) [Suspect]
     Active Substance: PARATHYROID HORMONE
     Dosage: 50 MICROGRAM, 1X/DAY:QD
     Route: 058
     Dates: start: 20181015, end: 20190911
  4. CALCITRIOL. [Concomitant]
     Active Substance: CALCITRIOL
     Indication: CONGENITAL HYPOPARATHYROIDISM

REACTIONS (2)
  - Therapeutic response unexpected [Unknown]
  - Renal failure [Unknown]
